FAERS Safety Report 7822660-5 (Version None)
Quarter: 2011Q4

REPORT INFORMATION
  Report Type: 
  Country: None (occurrence: None)
  Receive Date: 20111018
  Receipt Date: 20111010
  Transmission Date: 20120403
  Serious: Yes (Other)
  Sender: FDA-Public Use
  Company Number: US-ASTRAZENECA-2011SE27199

PATIENT
  Age: 65 Year
  Sex: Male

DRUGS (2)
  1. NEXIUM [Suspect]
     Dosage: EVERY OTHER DAY
     Route: 048
  2. NEXIUM [Suspect]
     Dosage: EVERY DAY
     Route: 048

REACTIONS (4)
  - SPINAL FRACTURE [None]
  - MALAISE [None]
  - FALL [None]
  - ULCER [None]
